FAERS Safety Report 7951303-5 (Version None)
Quarter: 2011Q4

REPORT INFORMATION
  Report Type: 
  Country: None (occurrence: None)
  Receive Date: 20111201
  Receipt Date: 20111123
  Transmission Date: 20120403
  Serious: Yes (Hospitalization)
  Sender: FDA-Public Use
  Company Number: CH-UCBSA-046449

PATIENT
  Age: 28 Year
  Sex: Female

DRUGS (2)
  1. MAGNESIUM SULFATE [Concomitant]
  2. CIMZIA [Suspect]
     Indication: CROHN'S DISEASE
     Route: 058
     Dates: start: 20090101, end: 20110613

REACTIONS (2)
  - DERMATITIS [None]
  - PSORIASIS [None]
